FAERS Safety Report 17403236 (Version 2)
Quarter: 2020Q1

REPORT INFORMATION
  Report Type: Report from Study
  Country: CO (occurrence: CO)
  Receive Date: 20200211
  Receipt Date: 20200224
  Transmission Date: 20200409
  Serious: Yes (Death, Hospitalization)
  Sender: FDA-Public Use
  Company Number: NVSC2020CO033565

PATIENT
  Sex: Female

DRUGS (2)
  1. KISQALI [Suspect]
     Active Substance: RIBOCICLIB
     Indication: BREAST CANCER METASTATIC
     Dosage: UNK
     Route: 048
     Dates: end: 202001
  2. FEMARA [Suspect]
     Active Substance: LETROZOLE
     Indication: BREAST CANCER
     Dosage: UNK
     Route: 048
     Dates: end: 202001

REACTIONS (6)
  - Breast cancer metastatic [Fatal]
  - Peripheral swelling [Unknown]
  - Malignant neoplasm progression [Fatal]
  - Swelling [Unknown]
  - Abdominal distension [Unknown]
  - Pain [Unknown]
